FAERS Safety Report 24879989 (Version 1)
Quarter: 2025Q1

REPORT INFORMATION
  Report Type: Spontaneous
  Country: SI (occurrence: SI)
  Receive Date: 20250123
  Receipt Date: 20250123
  Transmission Date: 20250409
  Serious: Yes (Death, Other)
  Sender: AMGEN
  Company Number: SI-AMGEN-SVNSP2025008322

PATIENT
  Age: 35 Year
  Sex: Female

DRUGS (1)
  1. XGEVA [Suspect]
     Active Substance: DENOSUMAB
     Indication: Bone cancer
     Route: 065
     Dates: start: 2021

REACTIONS (2)
  - Death [Fatal]
  - Angiosarcoma metastatic [Unknown]
